FAERS Safety Report 4348142-3 (Version None)
Quarter: 2004Q2

REPORT INFORMATION
  Report Type: 
  Country: None (occurrence: None)
  Receive Date: 20040422
  Receipt Date: 20040408
  Transmission Date: 20050107
  Serious: Yes (Other)
  Sender: FDA-Public Use
  Company Number: 2004-03-2188

PATIENT
  Age: 35 Year
  Sex: Female
  Weight: 68.0396 kg

DRUGS (1)
  1. DRIXORAL [Suspect]
     Indication: SINUS CONGESTION
     Dosage: 1 TAB QD ORAL
     Dates: start: 20040327, end: 20040327

REACTIONS (4)
  - LOSS OF CONSCIOUSNESS [None]
  - SOMNOLENCE [None]
  - TREMOR [None]
  - VOMITING [None]
